FAERS Safety Report 19386885 (Version 1)
Quarter: 2021Q2

REPORT INFORMATION
  Report Type: Spontaneous
  Country: US (occurrence: US)
  Receive Date: 20210605
  Receipt Date: 20210605
  Transmission Date: 20210717
  Serious: Yes (Disabling)
  Sender: FDA-Public Use
  Company Number: None

PATIENT
  Age: 36 Year
  Sex: Female
  Weight: 58.5 kg

DRUGS (6)
  1. PREBIOTICS [Concomitant]
  2. MAGNESIUM GLYCINATE [Concomitant]
     Active Substance: MAGNESIUM GLYCINATE
  3. ZINC. [Concomitant]
     Active Substance: ZINC
  4. 5?HTP, NEUROTRANSMITTER SUPPORT [Suspect]
     Active Substance: OXITRIPTAN
     Indication: INSOMNIA
     Dosage: ?          QUANTITY:1 TABLET(S);?
     Route: 048
     Dates: start: 20210105, end: 20210319
  5. LAMICTAL [Concomitant]
     Active Substance: LAMOTRIGINE
  6. OMEGA 3 [Concomitant]
     Active Substance: OMEGA-3 FATTY ACIDS

REACTIONS (31)
  - Trismus [None]
  - Flat affect [None]
  - Paranoia [None]
  - Disorientation [None]
  - Emotional disorder [None]
  - Paraesthesia [None]
  - Decreased appetite [None]
  - Gastrointestinal disorder [None]
  - Fatigue [None]
  - Crying [None]
  - Cognitive disorder [None]
  - Constipation [None]
  - Disturbance in attention [None]
  - Hypoaesthesia oral [None]
  - Irritability [None]
  - Hypoaesthesia [None]
  - Amnesia [None]
  - Sexual dysfunction [None]
  - Apathy [None]
  - Feeling abnormal [None]
  - Serotonin syndrome [None]
  - Suicidal ideation [None]
  - Anxiety [None]
  - Dissociation [None]
  - Abnormal behaviour [None]
  - Palpitations [None]
  - Dry mouth [None]
  - Chills [None]
  - Thirst [None]
  - Insomnia [None]
  - Tremor [None]

NARRATIVE: CASE EVENT DATE: 20210201
